FAERS Safety Report 14804491 (Version 1)
Quarter: 2018Q2

REPORT INFORMATION
  Report Type: Spontaneous
  Country: US (occurrence: US)
  Receive Date: 20180425
  Receipt Date: 20180425
  Transmission Date: 20180711
  Serious: No
  Sender: FDA-Public Use
  Company Number: US-TEVA-2018-US-867919

PATIENT
  Age: 5 Year
  Sex: Male

DRUGS (1)
  1. AZITHROMYCIN ANHYDROUS. [Suspect]
     Active Substance: AZITHROMYCIN ANHYDROUS
     Indication: SINUSITIS
     Dosage: DOSE STRENGTH:  200 MG/5 ML
     Dates: start: 20180304

REACTIONS (2)
  - Tongue erythema [Unknown]
  - Oral discomfort [Unknown]

NARRATIVE: CASE EVENT DATE: 20180304
